FAERS Safety Report 8118500-X (Version None)
Quarter: 2012Q1

REPORT INFORMATION
  Report Type: 
  Country: None (occurrence: None)
  Receive Date: 20120207
  Receipt Date: 20120201
  Transmission Date: 20120608
  Serious: Yes (Other)
  Sender: FDA-Public Use
  Company Number: DE-PFIZER INC-2012020059

PATIENT
  Age: 52 Year
  Sex: Female
  Weight: 78 kg

DRUGS (1)
  1. ATORVASTATIN CALCIUM [Suspect]
     Indication: HYPERCHOLESTEROLAEMIA
     Dosage: 80 MG, DAILY
     Route: 048
     Dates: start: 20100101

REACTIONS (2)
  - MYOSITIS [None]
  - TENDON RUPTURE [None]
